FAERS Safety Report 23285974 (Version 1)
Quarter: 2023Q4

REPORT INFORMATION
  Report Type: Spontaneous
  Country: AR (occurrence: AR)
  Receive Date: 20231212
  Receipt Date: 20231212
  Transmission Date: 20240110
  Serious: Yes (Other)
  Sender: FDA-Public Use
  Company Number: AR-CHEPLA-2023015558

PATIENT
  Sex: Female

DRUGS (6)
  1. CAPECITABINE [Suspect]
     Active Substance: CAPECITABINE
     Indication: Adenocarcinoma gastric
     Dosage: 3 PILLS THE MORNING AND THREE IN THE EVENING FOR 14-DAY PERIODS WITH A 7-DAY BREAK
     Route: 048
     Dates: start: 20220714
  2. OXALIPLATIN [Suspect]
     Active Substance: OXALIPLATIN
     Indication: Adenocarcinoma gastric
     Route: 042
     Dates: start: 20220714
  3. NIVOLUMAB [Suspect]
     Active Substance: NIVOLUMAB
     Indication: Adenocarcinoma gastric
     Route: 042
     Dates: start: 20220714
  4. TAXOL [Suspect]
     Active Substance: PACLITAXEL
     Indication: Adenocarcinoma gastric
  5. RAMUCIRUMAB [Suspect]
     Active Substance: RAMUCIRUMAB
     Indication: Adenocarcinoma gastric
     Dosage: GIVEN FIRST AND THIRD WEEK
  6. IRINOTECAN [Suspect]
     Active Substance: IRINOTECAN
     Indication: Adenocarcinoma gastric
     Route: 042

REACTIONS (3)
  - Ascites [Unknown]
  - Adenocarcinoma metastatic [Unknown]
  - Cancer fatigue [Unknown]

NARRATIVE: CASE EVENT DATE: 20220715
